FAERS Safety Report 12159156 (Version 1)
Quarter: 2016Q1

REPORT INFORMATION
  Report Type: Spontaneous
  Country: US (occurrence: US)
  Receive Date: 20160308
  Receipt Date: 20160308
  Transmission Date: 20160526
  Serious: No
  Sender: FDA-Public Use
  Company Number: US-ACTAVIS-2015-26372

PATIENT
  Sex: Female
  Weight: 70.31 kg

DRUGS (2)
  1. BETAMETHASONE DIPROPIONATE (AMALLC) [Suspect]
     Active Substance: BETAMETHASONE DIPROPIONATE
     Indication: RASH
     Dosage: 2-3 TIMES A DAY
     Route: 061
     Dates: start: 20151104
  2. XALKORI [Concomitant]
     Active Substance: CRIZOTINIB
     Indication: LUNG CANCER METASTATIC
     Dosage: 250 MG, BID
     Route: 048
     Dates: start: 201502

REACTIONS (2)
  - Drug ineffective [Not Recovered/Not Resolved]
  - Rash [None]
